FAERS Safety Report 24029683 (Version 1)
Quarter: 2024Q2

REPORT INFORMATION
  Report Type: Report from Study
  Country: FR (occurrence: FR)
  Receive Date: 20240628
  Receipt Date: 20240628
  Transmission Date: 20240716
  Serious: Yes (Other)
  Sender: FDA-Public Use
  Company Number: FR-REMICADEPIB4003-3304-5989

PATIENT
  Age: 14 Year
  Sex: Male

DRUGS (3)
  1. REMICADE [Suspect]
     Active Substance: INFLIXIMAB
     Indication: Crohn^s disease
     Route: 041
     Dates: start: 20141223, end: 20181126
  2. REMICADE [Suspect]
     Active Substance: INFLIXIMAB
     Route: 041
     Dates: start: 20130606, end: 20141127
  3. REMICADE [Suspect]
     Active Substance: INFLIXIMAB
     Route: 041
     Dates: start: 20121030, end: 20130606

REACTIONS (17)
  - Hepatic cytolysis [Not Recovered/Not Resolved]
  - Rectal haemorrhage [Recovered/Resolved]
  - Lymphoid tissue hyperplasia [Recovered/Resolved]
  - Hepatomegaly [Recovered/Resolved]
  - Infection parasitic [Recovered/Resolved]
  - Arthralgia [Recovered/Resolved]
  - Asthenia [Recovered/Resolved]
  - Musculoskeletal chest pain [Recovered/Resolved]
  - Diarrhoea [Recovered/Resolved]
  - Inflammation [Recovered/Resolved]
  - Oral herpes [Recovered/Resolved]
  - Palatal disorder [Recovered/Resolved]
  - Osteoporosis [Not Recovered/Not Resolved]
  - Vomiting [Recovered/Resolved]
  - Prurigo [Recovered/Resolved]
  - Lipomatosis [Recovered/Resolved]
  - Gastroenteritis viral [Recovered/Resolved]

NARRATIVE: CASE EVENT DATE: 20171026
